FAERS Safety Report 18895703 (Version 1)
Quarter: 2021Q1

REPORT INFORMATION
  Report Type: Spontaneous
  Country: CA (occurrence: CA)
  Receive Date: 20210215
  Receipt Date: 20210215
  Transmission Date: 20210420
  Serious: Yes (Other)
  Sender: FDA-Public Use
  Company Number: CA-BAUSCH-BL-2021-005147

PATIENT
  Age: 64 Year
  Sex: Male

DRUGS (1)
  1. WELLBUTRIN XL [Suspect]
     Active Substance: BUPROPION HYDROCHLORIDE
     Indication: PRODUCT USED FOR UNKNOWN INDICATION
     Dosage: STRAT DATE: ABOUT 5 TO 6 YEARS AGO.
     Route: 048

REACTIONS (2)
  - Disease progression [Unknown]
  - Amyotrophic lateral sclerosis [Unknown]
